FAERS Safety Report 5400707-3 (Version None)
Quarter: 2007Q3

REPORT INFORMATION
  Report Type: 
  Country: None (occurrence: None)
  Receive Date: 20070725
  Receipt Date: 20070713
  Transmission Date: 20080115
  Serious: Yes (Other)
  Sender: FDA-Public Use
  Company Number: LTI2007A00186

PATIENT
  Age: 36 Year
  Sex: Female

DRUGS (9)
  1. ACTOS [Suspect]
     Dosage: 45 MG (45 MG, 1 IN 1 D) ORAL
     Route: 048
  2. AMARYL [Concomitant]
  3. INEXIUM (ESOMEPRAZOLE) [Concomitant]
  4. ATORVASTATIN CALCIUM [Concomitant]
  5. RAMIPRIL [Concomitant]
  6. LEVOTHYROXINE SODIUM [Concomitant]
  7. VALACYCLOVIR HCL [Concomitant]
  8. EFFEXOR [Concomitant]
  9. LORAZEPAM [Concomitant]

REACTIONS (1)
  - ANKLE FRACTURE [None]
